FAERS Safety Report 20984520 (Version 2)
Quarter: 2022Q2

REPORT INFORMATION
  Report Type: Spontaneous
  Country: CN (occurrence: CN)
  Receive Date: 20220621
  Receipt Date: 20220628
  Transmission Date: 20220720
  Serious: Yes (Death, Other)
  Sender: FDA-Public Use
  Company Number: CN-ZAILAB-ZAI202200618

PATIENT
  Age: 58 Year
  Sex: Male

DRUGS (1)
  1. QINLOCK [Suspect]
     Active Substance: RIPRETINIB
     Indication: Gastrointestinal stromal tumour
     Dosage: 150 MG, DAILY
     Route: 048
     Dates: start: 20210611

REACTIONS (5)
  - Death [Fatal]
  - Pericardial effusion [Unknown]
  - Pleural effusion [Unknown]
  - Localised infection [Unknown]
  - Cardiac failure [Unknown]

NARRATIVE: CASE EVENT DATE: 20220304
